FAERS Safety Report 15691041 (Version 1)
Quarter: 2018Q4

REPORT INFORMATION
  Report Type: Spontaneous
  Country: US (occurrence: US)
  Receive Date: 20181205
  Receipt Date: 20181205
  Transmission Date: 20190205
  Serious: Yes (Other)
  Sender: FDA-Public Use
  Company Number: US-ASTRAZENECA-2009UW08082

PATIENT
  Age: 53 Year
  Sex: Male
  Weight: 118.8 kg

DRUGS (1)
  1. NEXIUM [Suspect]
     Active Substance: ESOMEPRAZOLE MAGNESIUM
     Indication: GASTROOESOPHAGEAL REFLUX DISEASE
     Route: 048
     Dates: start: 2010, end: 2016

REACTIONS (8)
  - Headache [Unknown]
  - Abdominal pain [Unknown]
  - Dizziness [Unknown]
  - Diarrhoea [Unknown]
  - Flatulence [Unknown]
  - Chronic kidney disease [Unknown]
  - Dry mouth [Unknown]
  - Vision blurred [Unknown]
